FAERS Safety Report 17581821 (Version 1)
Quarter: 2020Q1

REPORT INFORMATION
  Report Type: Spontaneous
  Country: IN (occurrence: IN)
  Receive Date: 20200325
  Receipt Date: 20200325
  Transmission Date: 20200409
  Serious: Yes (Hospitalization, Other)
  Sender: FDA-Public Use
  Company Number: NVSC2020IN082537

PATIENT
  Age: 23 Year
  Sex: Female
  Weight: 23.7 kg

DRUGS (11)
  1. MOXIFLOXACIN. [Suspect]
     Active Substance: MOXIFLOXACIN
     Dosage: 600 MG, QD
     Route: 065
     Dates: start: 20191120, end: 20200225
  2. AMOXCLAV [Suspect]
     Active Substance: AMOXICILLIN\CLAVULANIC ACID
     Dosage: 650 MG, BID
     Route: 065
     Dates: start: 20191120, end: 20200225
  3. IMIPENEM [Suspect]
     Active Substance: IMIPENEM
     Dosage: 1 G, BID
     Route: 065
     Dates: start: 20191120, end: 20200225
  4. LINEZOLID. [Suspect]
     Active Substance: LINEZOLID
     Dosage: 300 MG, QD
     Route: 065
     Dates: start: 20191120, end: 20200225
  5. OMEPRAZOLE. [Concomitant]
     Active Substance: OMEPRAZOLE
     Indication: PRODUCT USED FOR UNKNOWN INDICATION
     Dosage: UNK
     Route: 065
     Dates: start: 20191120
  6. GLYCOPYRRONIUM BROMIDE [Concomitant]
     Active Substance: GLYCOPYRRONIUM
     Indication: PRODUCT USED FOR UNKNOWN INDICATION
     Dosage: UNK
     Route: 065
     Dates: start: 20191120
  7. CLOFAZIMINE [Suspect]
     Active Substance: CLOFAZIMINE
     Indication: TUBERCULOSIS
     Dosage: 100 MG, QD
     Route: 065
     Dates: start: 20191120, end: 20200225
  8. BEDAQUILINE [Suspect]
     Active Substance: BEDAQUILINE
     Dosage: 100 MG, TID
     Route: 065
     Dates: start: 20191120, end: 20200225
  9. DELAMANID [Suspect]
     Active Substance: DELAMANID
     Dosage: 50 MG, BID
     Route: 065
     Dates: start: 20191120, end: 20200225
  10. ONDASETRON [Concomitant]
     Active Substance: ONDANSETRON
     Indication: PRODUCT USED FOR UNKNOWN INDICATION
     Dosage: UNK
     Route: 065
     Dates: start: 20191121
  11. METOCLOPRAMIDE. [Concomitant]
     Active Substance: METOCLOPRAMIDE
     Indication: PRODUCT USED FOR UNKNOWN INDICATION
     Dosage: UNK
     Route: 065
     Dates: start: 20191120

REACTIONS (8)
  - Dyspnoea at rest [Unknown]
  - Electrocardiogram QT prolonged [Unknown]
  - Pyrexia [Unknown]
  - Electrolyte imbalance [Unknown]
  - Diarrhoea [Unknown]
  - Decreased appetite [Unknown]
  - Underdose [Unknown]
  - Dehydration [Unknown]

NARRATIVE: CASE EVENT DATE: 20191120
